FAERS Safety Report 24147483 (Version 1)
Quarter: 2024Q3

REPORT INFORMATION
  Report Type: Report from Study
  Country: US (occurrence: None)
  Receive Date: 20240729
  Receipt Date: 20240729
  Transmission Date: 20241017
  Serious: Yes (Hospitalization, Other)
  Sender: ASTRAZENECA
  Company Number: 2023A203455

PATIENT
  Age: 27121 Day
  Sex: Female

DRUGS (1)
  1. BREZTRI [Suspect]
     Active Substance: BUDESONIDE\FORMOTEROL\GLYCOPYRROLATE
     Dosage: UNKNOWN
     Route: 055

REACTIONS (5)
  - Loss of consciousness [Unknown]
  - Choking [Unknown]
  - Haematochezia [Unknown]
  - Vocal cord paralysis [Unknown]
  - Head injury [Unknown]

NARRATIVE: CASE EVENT DATE: 20230609
